FAERS Safety Report 9263713 (Version 2)
Quarter: 2014Q2

REPORT INFORMATION
  Report Type: Spontaneous
  Country: JP (occurrence: JP)
  Receive Date: 20130430
  Receipt Date: 20140604
  Transmission Date: 20141212
  Serious: Yes (Hospitalization, Other)
  Sender: FDA-Public Use
  Company Number: PHHY2013JP006218

PATIENT
  Age: 56 Year
  Sex: Female

DRUGS (2)
  1. ZOLEDRONATE [Suspect]
     Indication: METASTASES TO BONE
     Dosage: 4 MG, ONCE A MONTH
     Route: 041
  2. PAMIDRONATE [Suspect]
     Indication: METASTASES TO BONE
     Dosage: 90 MG, ONCE A MONTH
     Route: 041

REACTIONS (6)
  - Injury [Unknown]
  - Femur fracture [Recovered/Resolved]
  - Atypical femur fracture [Recovered/Resolved]
  - Pain in extremity [Unknown]
  - Impaired healing [Recovering/Resolving]
  - Pain [Unknown]
